FAERS Safety Report 4974829-5 (Version None)
Quarter: 2006Q1

REPORT INFORMATION
  Report Type: 
  Country: None (occurrence: None)
  Receive Date: 20060216
  Receipt Date: 20050606
  Transmission Date: 20060701
  Serious: Yes (Hospitalization, Other)
  Sender: FDA-Public Use
  Company Number: 200506IM000219

PATIENT
  Age: 62 Year
  Sex: Female
  Weight: 89.5 kg

DRUGS (20)
  1. BLINDED THERAPY (INTERFERON GAMMA-1B) [Suspect]
     Indication: IDIOPATHIC PULMONARY FIBROSIS
     Dosage: SEE IMAGE
     Route: 058
     Dates: start: 20040914, end: 20050603
  2. BLINDED THERAPY (INTERFERON GAMMA-1B) [Suspect]
     Indication: IDIOPATHIC PULMONARY FIBROSIS
     Dosage: SEE IMAGE
     Route: 058
     Dates: start: 20050617
  3. BLINDED THERAPY (INTERFERON GAMMA-1B) [Suspect]
     Indication: IDIOPATHIC PULMONARY FIBROSIS
     Dosage: SEE IMAGE
     Route: 058
     Dates: start: 20050701
  4. LIPITOR [Concomitant]
  5. METOLAZONE [Concomitant]
  6. ROBITUSSIN DM [Concomitant]
  7. ZETIA [Concomitant]
  8. SEPTRA DS [Concomitant]
  9. PREDNISONE TAB [Concomitant]
  10. FOSAMAX [Concomitant]
  11. SYNTHROID [Concomitant]
  12. BENZONATATE [Concomitant]
  13. PRAVACHOL [Concomitant]
  14. LASIX [Concomitant]
  15. K-DUR 10 [Concomitant]
  16. CARDIZEM CD [Concomitant]
  17. ALBUTEROL SULFATE AUTOHALER [Concomitant]
  18. CALCIUM GLUCONATE [Concomitant]
  19. VITAMIN D [Concomitant]
  20. TYLENOL (CAPLET) [Concomitant]

REACTIONS (1)
  - RESPIRATORY TRACT INFECTION VIRAL [None]
